FAERS Safety Report 10339673 (Version 2)
Quarter: 2014Q3

REPORT INFORMATION
  Report Type: Spontaneous
  Country: US (occurrence: US)
  Receive Date: 20140724
  Receipt Date: 20140724
  Transmission Date: 20150326
  Serious: Yes (Death, Hospitalization)
  Sender: FDA-Public Use
  Company Number: US-GLAXOSMITHKLINE-A0759831A

PATIENT
  Age: 53 Year
  Sex: Female
  Weight: 68.2 kg

DRUGS (5)
  1. HCTZ [Concomitant]
     Active Substance: HYDROCHLOROTHIAZIDE
  2. AVANDIA [Suspect]
     Active Substance: ROSIGLITAZONE MALEATE
     Indication: TYPE 2 DIABETES MELLITUS
     Dosage: 8MG UNKNOWN
     Route: 048
     Dates: start: 200010, end: 20060612
  3. WELLBUTRIN [Concomitant]
     Active Substance: BUPROPION HYDROCHLORIDE
  4. ATENOLOL. [Concomitant]
     Active Substance: ATENOLOL
  5. NITROGLYCERINE [Concomitant]
     Active Substance: NITROGLYCERIN

REACTIONS (4)
  - Cardiac arrest [Fatal]
  - Myocardial infarction [Fatal]
  - Coronary artery disease [Unknown]
  - Arrhythmia [Unknown]

NARRATIVE: CASE EVENT DATE: 200104
